FAERS Safety Report 5951745-3 (Version None)
Quarter: 2008Q4

REPORT INFORMATION
  Report Type: 
  Country: None (occurrence: None)
  Receive Date: 20081113
  Receipt Date: 20081105
  Transmission Date: 20090506
  Serious: Yes (Hospitalization)
  Sender: FDA-Public Use
  Company Number: JP-MERCK-0809USA03849

PATIENT
  Age: 70 Year
  Sex: Female

DRUGS (14)
  1. FOSAMAX [Suspect]
     Indication: OSTEOPOROSIS
     Route: 048
     Dates: start: 20070323, end: 20080307
  2. FOSAMAX [Suspect]
     Route: 048
     Dates: end: 20070322
  3. DIDRONEL [Suspect]
     Route: 048
     Dates: start: 20061116, end: 20070322
  4. PREDNISOLONE [Suspect]
     Route: 048
     Dates: start: 20030512
  5. LANSOPRAZOLE [Concomitant]
     Route: 048
  6. CYANOCOBALAMIN [Concomitant]
     Route: 048
  7. GLAKAY [Concomitant]
     Route: 048
  8. MUCOSTA [Concomitant]
     Route: 048
  9. BLOPRESS [Concomitant]
     Route: 048
  10. GASMOTIN [Concomitant]
     Route: 048
  11. LIPITOR [Concomitant]
     Route: 048
  12. AMLODIN [Concomitant]
     Route: 048
  13. VOLTAREN [Concomitant]
     Route: 048
  14. PLETAL [Concomitant]
     Route: 048

REACTIONS (1)
  - OSTEOMYELITIS [None]
